FAERS Safety Report 24790193 (Version 1)
Quarter: 2024Q4

REPORT INFORMATION
  Report Type: Report from Study
  Country: US (occurrence: US)
  Receive Date: 20241230
  Receipt Date: 20241230
  Transmission Date: 20250115
  Serious: Yes (Death, Other)
  Sender: ALEXION PHARMACEUTICALS
  Company Number: US-AstraZeneca-CH-00728956A

PATIENT

DRUGS (1)
  1. BENRALIZUMAB [Suspect]
     Active Substance: BENRALIZUMAB
     Dosage: UNK

REACTIONS (2)
  - Death [Fatal]
  - Dementia Alzheimer^s type [Unknown]
